FAERS Safety Report 9578494 (Version 1)
Quarter: 2013Q4

REPORT INFORMATION
  Report Type: Spontaneous
  Country: US (occurrence: US)
  Receive Date: 20131001
  Receipt Date: 20131001
  Transmission Date: 20140711
  Serious: No
  Sender: FDA-Public Use
  Company Number: US-AMGEN-USASP2013013097

PATIENT
  Sex: Male
  Weight: 79.37 kg

DRUGS (9)
  1. ENBREL [Suspect]
     Indication: RHEUMATOID ARTHRITIS
     Dosage: 25 MG, QWK
     Route: 058
  2. GLIMEPIRID [Concomitant]
     Dosage: 4 MG, UNK
  3. HYDROXYZINE HCL [Concomitant]
     Dosage: 50 MG, UNK
  4. ALBUTEROL                          /00139501/ [Concomitant]
     Dosage: 90 MUG, UNK
  5. FLUTICASONE [Concomitant]
     Dosage: 50 MUG, UNK
  6. ALLERGY                            /00000402/ [Concomitant]
     Dosage: 1 MG/ML, UNK
  7. L-TYROSINE [Concomitant]
     Dosage: 500 MG, UNK
  8. VITAMIN E                          /00110501/ [Concomitant]
     Dosage: 1000 UNIT, UNK
  9. PULMICORT [Concomitant]
     Dosage: 180 MUG, UNK

REACTIONS (1)
  - Platelet count abnormal [Unknown]
